FAERS Safety Report 5455786-4 (Version None)
Quarter: 2007Q3

REPORT INFORMATION
  Report Type: 
  Country: None (occurrence: None)
  Receive Date: 20070914
  Receipt Date: 20070905
  Transmission Date: 20080115
  Serious: Yes (Hospitalization)
  Sender: FDA-Public Use
  Company Number: 2007BI017202

PATIENT
  Age: 49 Year
  Sex: Male

DRUGS (1)
  1. NATALIZUMAB [Suspect]
     Indication: MULTIPLE SCLEROSIS
     Dosage: 300 MG; QM; IV
     Route: 042
     Dates: start: 20060919

REACTIONS (9)
  - BLADDER SPASM [None]
  - CONSTIPATION [None]
  - CYSTITIS [None]
  - DEHYDRATION [None]
  - DEPRESSION [None]
  - INTRAOCULAR MELANOMA [None]
  - MUSCLE SPASTICITY [None]
  - NEUROGENIC BLADDER [None]
  - URINARY TRACT INFECTION [None]
